FAERS Safety Report 5368121-7 (Version None)
Quarter: 2007Q2

REPORT INFORMATION
  Report Type: 
  Country: None (occurrence: None)
  Receive Date: 20070622
  Receipt Date: 20070615
  Transmission Date: 20071010
  Serious: Yes (Death, Hospitalization)
  Sender: FDA-Public Use
  Company Number: AU-PFIZER INC-9946261

PATIENT
  Age: 15 Year
  Sex: Female

DRUGS (7)
  1. ZOLOFT [Suspect]
     Indication: ANXIETY
     Route: 048
  2. ZOLOFT [Suspect]
     Indication: DEPRESSION
  3. CYCLOSPORINE [Concomitant]
  4. FENTANYL [Concomitant]
  5. MORPHINE [Concomitant]
  6. METHADONE HCL [Concomitant]
  7. ALL OTHER THERAPEUTIC PRODUCTS [Concomitant]

REACTIONS (3)
  - SEPSIS [None]
  - VENTRICULAR TACHYCARDIA [None]
  - VOMITING [None]
